FAERS Safety Report 4489442-6 (Version None)
Quarter: 2004Q4

REPORT INFORMATION
  Report Type: 
  Country: None (occurrence: None)
  Receive Date: 20041101
  Receipt Date: 20041020
  Transmission Date: 20050328
  Serious: Yes (Other)
  Sender: FDA-Public Use
  Company Number: PHFR2004GB03918

PATIENT
  Sex: Female

DRUGS (3)
  1. SANDOSTATIN [Suspect]
  2. CYCLIZINE [Concomitant]
  3. DIAMORPHINE [Concomitant]

REACTIONS (6)
  - ALANINE AMINOTRANSFERASE [None]
  - ASPARTATE AMINOTRANSFERASE INCREASED [None]
  - BLOOD ALKALINE PHOSPHATASE INCREASED [None]
  - BLOOD BILIRUBIN INCREASED [None]
  - LIVER FUNCTION TEST ABNORMAL [None]
  - OVARIAN CANCER [None]
